FAERS Safety Report 14268530 (Version 12)
Quarter: 2019Q2

REPORT INFORMATION
  Report Type: Spontaneous
  Country: ES (occurrence: ES)
  Receive Date: 20171211
  Receipt Date: 20190515
  Transmission Date: 20190711
  Serious: Yes (Life-Threatening, Hospitalization, Congenital Anomaly, Other)
  Sender: FDA-Public Use
  Company Number: ES-MYLANLABS-2017M1076918

PATIENT
  Age: 32 Week
  Sex: Male

DRUGS (5)
  1. CAPTOPRIL. [Suspect]
     Active Substance: CAPTOPRIL
     Indication: PRODUCT USED FOR UNKNOWN INDICATION
     Dosage: UNK
     Route: 064
  2. FUROSEMIDE. [Suspect]
     Active Substance: FUROSEMIDE
     Indication: PRODUCT USED FOR UNKNOWN INDICATION
     Dosage: UNK
     Route: 064
  3. OLMESARTAN MEDOXOMIL. [Suspect]
     Active Substance: OLMESARTAN MEDOXOMIL
     Indication: ESSENTIAL HYPERTENSION
     Dosage: LAST DOSE ADMINISTERED 24 HOURS PRIOR TO C-SECTION
     Route: 064
  4. NICARDIPINE [Suspect]
     Active Substance: NICARDIPINE
     Indication: PRODUCT USED FOR UNKNOWN INDICATION
     Dosage: UNK
     Route: 064
  5. AMLODIPINE [Suspect]
     Active Substance: AMLODIPINE BESYLATE
     Indication: ESSENTIAL HYPERTENSION
     Dosage: QD, LAST DOSE ADMINISTERED 24 HOURS PRIOR TO C-SECTION
     Route: 064

REACTIONS (18)
  - Congenital anomaly [Unknown]
  - Low set ears [Unknown]
  - Anaemia neonatal [Recovered/Resolved]
  - Potter^s syndrome [Recovering/Resolving]
  - Renal failure neonatal [Recovering/Resolving]
  - Hypotonia neonatal [Unknown]
  - Foetal exposure during pregnancy [Recovered/Resolved]
  - Foetal growth restriction [Unknown]
  - Kidney small [Unknown]
  - Pulmonary hypoplasia [Recovered/Resolved]
  - Proteinuria [Recovered/Resolved]
  - Pneumothorax [Recovered/Resolved]
  - Anuria [Recovered/Resolved]
  - Hypertension neonatal [Unknown]
  - Oliguria [Recovering/Resolving]
  - Areflexia [Recovered/Resolved]
  - Oligohydramnios [Not Recovered/Not Resolved]
  - Hypotension [Recovered/Resolved]
